FAERS Safety Report 5141570-8 (Version None)
Quarter: 2006Q4

REPORT INFORMATION
  Report Type: 
  Country: None (occurrence: None)
  Receive Date: 20061026
  Receipt Date: 20061013
  Transmission Date: 20070319
  Serious: Yes (Hospitalization)
  Sender: FDA-Public Use
  Company Number: 2006126028

PATIENT
  Age: 57 Year
  Sex: Female

DRUGS (3)
  1. ZITHROMAX [Suspect]
  2. CYMBALTA [Suspect]
  3. OTHER UNSPECIFIED MEDICATIONS (ALL OTHER THERAPEUTIC PRODUCTS) [Concomitant]

REACTIONS (2)
  - DRUG HYPERSENSITIVITY [None]
  - PSYCHOTIC DISORDER [None]
